FAERS Safety Report 19447370 (Version 1)
Quarter: 2021Q2

REPORT INFORMATION
  Report Type: Spontaneous
  Country: US (occurrence: US)
  Receive Date: 20210621
  Receipt Date: 20210621
  Transmission Date: 20210717
  Serious: Yes (Other)
  Sender: FDA-Public Use
  Company Number: None

PATIENT
  Age: 49 Year
  Sex: Female

DRUGS (6)
  1. CYCLOBENZAPR [Concomitant]
     Active Substance: CYCLOBENZAPRINE
     Dates: start: 20210415
  2. METHOTREXATE. [Concomitant]
     Active Substance: METHOTREXATE
     Dates: start: 20210406
  3. FOLIC ACID. [Concomitant]
     Active Substance: FOLIC ACID
     Dates: start: 20210406
  4. CLOBETSAL [Concomitant]
     Dates: start: 20210611
  5. ROSUVASTATIN. [Concomitant]
     Active Substance: ROSUVASTATIN
     Dates: start: 20201026
  6. TALTZ [Suspect]
     Active Substance: IXEKIZUMAB
     Indication: PRODUCT USED FOR UNKNOWN INDICATION
     Dosage: OTHER FREQUENCY:EVERY 28 DAYS;?
     Route: 058
     Dates: start: 20210526

REACTIONS (1)
  - Malignant melanoma [None]

NARRATIVE: CASE EVENT DATE: 20210616
